FAERS Safety Report 21302218 (Version 3)
Quarter: 2022Q4

REPORT INFORMATION
  Report Type: Report from Study
  Country: US (occurrence: US)
  Receive Date: 20220907
  Receipt Date: 20221108
  Transmission Date: 20230113
  Serious: Yes (Other)
  Sender: FDA-Public Use
  Company Number: US-ALBIREO AB-US-2022-00071

PATIENT
  Age: 14 Year
  Sex: Male
  Weight: 29.2 kg

DRUGS (2)
  1. ODEVIXIBAT [Suspect]
     Active Substance: ODEVIXIBAT
     Indication: Progressive familial intrahepatic cholestasis
     Dosage: 3600 UG, QD
     Route: 048
     Dates: start: 20210420, end: 20220328
  2. VITAMIN A PALMITATE [RETINOL PALMITATE] [Concomitant]
     Indication: Product used for unknown indication
     Dosage: 7.5 ML, QD
     Route: 048
     Dates: start: 20191014

REACTIONS (1)
  - Diarrhoea [Recovered/Resolved]

NARRATIVE: CASE EVENT DATE: 20211230
